FAERS Safety Report 7978257-X (Version None)
Quarter: 2011Q4

REPORT INFORMATION
  Report Type: 
  Country: None (occurrence: None)
  Receive Date: 20111129
  Receipt Date: 20110728
  Transmission Date: 20120403
  Serious: No
  Sender: FDA-Public Use
  Company Number: PHHY2011US58716

PATIENT
  Age: 7 Year
  Sex: Male

DRUGS (4)
  1. FOCALIN [Concomitant]
  2. RISPERDAL [Concomitant]
  3. METADATE CD [Concomitant]
  4. AFINITOR [Suspect]
     Indication: ASTROCYTOMA
     Dosage: 2.5 MG, DAILY, ORAL
     Route: 048
     Dates: start: 20110625

REACTIONS (3)
  - APHTHOUS STOMATITIS [None]
  - GINGIVAL ERYTHEMA [None]
  - ORAL PAIN [None]
